FAERS Safety Report 7997967-1 (Version None)
Quarter: 2011Q4

REPORT INFORMATION
  Report Type: 
  Country: None (occurrence: None)
  Receive Date: 20111221
  Receipt Date: 20111216
  Transmission Date: 20120403
  Serious: Yes (Hospitalization, Other)
  Sender: FDA-Public Use
  Company Number: PHHY2010CA85027

PATIENT
  Sex: Female
  Weight: 58.1 kg

DRUGS (10)
  1. ZOLEDRONOC ACID [Suspect]
     Dosage: 5 MG/100 ML, ONCE A YEAR
     Dates: start: 20100204
  2. LOPRESSOR [Concomitant]
  3. SYNTHROID [Concomitant]
  4. EVISTA [Concomitant]
     Indication: BACK PAIN
  5. CALCIUM [Concomitant]
  6. VITAMIN D [Concomitant]
  7. PANTOPRAZOLE SODIUM [Concomitant]
  8. ZOCOR [Concomitant]
  9. NORVASC [Concomitant]
  10. ASAPHEN [Concomitant]

REACTIONS (10)
  - BONE PAIN [None]
  - NECK PAIN [None]
  - HEART RATE INCREASED [None]
  - PAIN IN EXTREMITY [None]
  - BONE DENSITY DECREASED [None]
  - PYREXIA [None]
  - MUSCULOSKELETAL PAIN [None]
  - INFECTION [None]
  - SPINAL OSTEOARTHRITIS [None]
  - BACK PAIN [None]
